FAERS Safety Report 7112664-2 (Version None)
Quarter: 2010Q4

REPORT INFORMATION
  Report Type: 
  Country: None (occurrence: None)
  Receive Date: 20101119
  Receipt Date: 20101104
  Transmission Date: 20110411
  Serious: Yes (Hospitalization)
  Sender: FDA-Public Use
  Company Number: PHHY2010CL58246

PATIENT
  Age: 67 Year
  Sex: Female

DRUGS (7)
  1. TAREG D [Suspect]
     Dosage: 160/12.5 MG, TWO TABLETS PER DAY
     Dates: start: 20050101
  2. DILATREND [Concomitant]
  3. COUMADIN [Concomitant]
  4. ATLANSIL [Concomitant]
  5. YONKA [Concomitant]
  6. EUTHYROX [Concomitant]
  7. ATORVASTATIN [Concomitant]

REACTIONS (2)
  - ARRHYTHMIA [None]
  - TACHYCARDIA [None]
